FAERS Safety Report 4984951-5 (Version None)
Quarter: 2006Q2

REPORT INFORMATION
  Report Type: 
  Country: None (occurrence: None)
  Receive Date: 20060427
  Receipt Date: 20060412
  Transmission Date: 20061013
  Serious: Yes (Hospitalization)
  Sender: FDA-Public Use
  Company Number: HQWYE821713APR06

PATIENT
  Sex: Female

DRUGS (13)
  1. ENBREL [Suspect]
     Indication: RHEUMATOID ARTHRITIS
     Route: 058
     Dates: start: 20050421, end: 20060322
  2. PREDONINE [Concomitant]
     Indication: RHEUMATOID ARTHRITIS
     Route: 048
  3. VOLTAREN [Concomitant]
     Indication: RHEUMATOID ARTHRITIS
     Route: 048
  4. TAGAMET [Concomitant]
     Indication: DIABETES MELLITUS
     Route: 048
  5. DIOVAN [Concomitant]
     Route: 048
  6. NORVASC [Concomitant]
     Route: 048
  7. NOVORAPID [Concomitant]
     Route: 058
  8. ISOPHANE INSULIN [Concomitant]
     Route: 058
  9. LANSOPRAZOLE [Concomitant]
     Dosage: UNKNOWN
     Route: 048
  10. AMOXICILLIN [Concomitant]
     Dosage: UNKNOWN
     Route: 048
  11. CLARITHROMYCIN [Concomitant]
     Dosage: UNKNOWN
     Route: 048
  12. CHLOROPHYLLIN SODIUM COPPER COMPLEX [Concomitant]
     Route: 048
  13. LACTOBACILLUS ACIDOPHILUS [Concomitant]
     Route: 048

REACTIONS (3)
  - CELL MARKER INCREASED [None]
  - COUGH [None]
  - PULMONARY FIBROSIS [None]
